FAERS Safety Report 19212432 (Version 1)
Quarter: 2021Q2

REPORT INFORMATION
  Report Type: Spontaneous
  Country: DK (occurrence: DK)
  Receive Date: 20210504
  Receipt Date: 20210504
  Transmission Date: 20210717
  Serious: Yes (Life-Threatening, Hospitalization, Other)
  Sender: FDA-Public Use
  Company Number: DK-OTSUKA-2021_015098

PATIENT
  Age: 37 Year
  Sex: Male
  Weight: 130 kg

DRUGS (2)
  1. ARIPIPRAZOLE. [Suspect]
     Active Substance: ARIPIPRAZOLE
     Indication: BIPOLAR DISORDER
     Dosage: 10MG DAILY + 10MG AS NECESSARY
     Route: 048
     Dates: start: 20191113, end: 20200828
  2. OLANZAPIN [Suspect]
     Active Substance: OLANZAPINE
     Indication: MENTAL DISORDER
     Dosage: 10 MG, QD (10MG DAILY + 10MG AS NECESSARY)
     Route: 048
     Dates: start: 20191122

REACTIONS (1)
  - Pulmonary embolism [Unknown]

NARRATIVE: CASE EVENT DATE: 20200523
